FAERS Safety Report 10258437 (Version 1)
Quarter: 2014Q2

REPORT INFORMATION
  Report Type: Spontaneous
  Country: US (occurrence: US)
  Receive Date: 20140625
  Receipt Date: 20140625
  Transmission Date: 20141212
  Serious: No
  Sender: FDA-Public Use
  Company Number: US-PFIZER INC-2014171510

PATIENT
  Age: 75 Year
  Sex: Male
  Weight: 62.59 kg

DRUGS (1)
  1. DILANTIN [Suspect]
     Indication: TRIGEMINAL NEURALGIA
     Dosage: 100 MG, 3X/DAY
     Dates: start: 20140601, end: 2014

REACTIONS (1)
  - Lactose intolerance [Unknown]
